FAERS Safety Report 10061230 (Version 1)
Quarter: 2014Q2

REPORT INFORMATION
  Report Type: Spontaneous
  Country: FR (occurrence: FR)
  Receive Date: 20140407
  Receipt Date: 20140407
  Transmission Date: 20141212
  Serious: Yes (Other)
  Sender: FDA-Public Use
  Company Number: FR-MERCK-1404FRA000380

PATIENT
  Age: 66 Year
  Sex: Female

DRUGS (12)
  1. INVANZ [Suspect]
     Dosage: 1 G, QD
     Route: 042
     Dates: start: 20140115, end: 20140128
  2. FLAGYL [Concomitant]
     Dosage: 500 MG, TID
     Route: 048
  3. GEMZAR [Concomitant]
     Route: 042
  4. LEVOTHYROX [Concomitant]
     Dosage: 125 MICROGRAM, UNK
     Route: 048
  5. AMLODIPINE [Concomitant]
     Dosage: 5 MG, QD
     Route: 048
  6. NEBIVOLOL [Concomitant]
     Dosage: 5 MG, QD
     Route: 048
  7. INEXIUM [Concomitant]
     Dosage: 40 MG, QD
     Route: 048
  8. PRIMPERAN [Concomitant]
     Dosage: UNK, PRN
     Dates: start: 20140117
  9. TRANXENE [Concomitant]
     Dosage: UNK
     Dates: start: 20140114
  10. ROCEPHIN [Concomitant]
     Dosage: UNK
     Route: 042
     Dates: start: 20140106, end: 20140113
  11. GENTAMICIN [Concomitant]
     Dosage: UNK
     Route: 042
     Dates: start: 20140114, end: 20140119
  12. AMIKLIN [Concomitant]
     Dosage: UNK
     Dates: start: 20140114, end: 20140127

REACTIONS (1)
  - Cerebellar ataxia [Recovering/Resolving]
